FAERS Safety Report 7240340-4 (Version None)
Quarter: 2011Q1

REPORT INFORMATION
  Report Type: 
  Country: None (occurrence: None)
  Receive Date: 20110120
  Receipt Date: 20110120
  Transmission Date: 20110831
  Serious: Yes (Disabling)
  Sender: FDA-Public Use
  Company Number: None

PATIENT
  Age: 72 Year
  Sex: Female
  Weight: 79.3795 kg

DRUGS (1)
  1. LEVAQUIN [Suspect]
     Indication: PNEUMONIA
     Dosage: 750MG DAILY ORAL
     Route: 048
     Dates: start: 20100824, end: 20100829

REACTIONS (2)
  - BLINDNESS UNILATERAL [None]
  - VITREOUS FLOATERS [None]
